FAERS Safety Report 8034101-6 (Version None)
Quarter: 2012Q1

REPORT INFORMATION
  Report Type: 
  Country: None (occurrence: None)
  Receive Date: 20120110
  Receipt Date: 20120102
  Transmission Date: 20120608
  Serious: Yes (Hospitalization, Other)
  Sender: FDA-Public Use
  Company Number: US-ASTRAZENECA-2011SE77849

PATIENT
  Age: 63 Year
  Sex: Female

DRUGS (13)
  1. QUETIAPINE [Suspect]
     Route: 048
  2. FARNOTIDINE [Concomitant]
  3. ATORVASTATIN [Concomitant]
     Route: 048
  4. VITAMIN D [Concomitant]
  5. ESTROPIPATE [Concomitant]
  6. PAROXETINE [Concomitant]
  7. TRIHEXYPHENIDYL HCL [Concomitant]
  8. LORAZEPAM [Concomitant]
  9. MEDROXYPROGESTERONE [Concomitant]
  10. SITAGLIPTIN [Concomitant]
  11. MONTELUKAST [Concomitant]
  12. QUETIAPINE [Suspect]
     Route: 048
  13. OMEPRAZOLE [Concomitant]

REACTIONS (3)
  - CONFUSIONAL STATE [None]
  - MOOD SWINGS [None]
  - ELECTROCARDIOGRAM QT PROLONGED [None]
